FAERS Safety Report 5211810-5 (Version None)
Quarter: 2007Q1

REPORT INFORMATION
  Report Type: 
  Country: None (occurrence: None)
  Receive Date: 20070116
  Receipt Date: 20070116
  Transmission Date: 20070707
  Serious: Yes (Other)
  Sender: FDA-Public Use
  Company Number: None

PATIENT
  Sex: Female
  Weight: 99.7913 kg

DRUGS (4)
  1. ADRIAMYCIN PFS [Suspect]
     Indication: BREAST CANCER STAGE III
     Dosage: 121 MG IV Q14D X 4 CYCLES
     Route: 042
     Dates: start: 20061226
  2. DEXAMETHASONE TAB [Concomitant]
  3. ALOXI  0.25 MG IV/PUSH [Concomitant]
  4. SODIUM CHLORIDE [Concomitant]

REACTIONS (3)
  - CHEST DISCOMFORT [None]
  - COUGH [None]
  - INFUSION RELATED REACTION [None]
